FAERS Safety Report 16444109 (Version 1)
Quarter: 2019Q2

REPORT INFORMATION
  Report Type: Spontaneous
  Country: DE (occurrence: DE)
  Receive Date: 20190618
  Receipt Date: 20190618
  Transmission Date: 20190711
  Serious: Yes (Other)
  Sender: FDA-Public Use
  Company Number: DE-GLAXOSMITHKLINE-DE2019108930

PATIENT
  Age: 38 Year
  Sex: Female

DRUGS (3)
  1. LAMOTRIGINE. [Suspect]
     Active Substance: LAMOTRIGINE
     Indication: HYPOTHYROIDISM
     Dosage: 300 [MG/D (BIS 100) ]
     Route: 048
     Dates: start: 20180307, end: 20180805
  2. FOLIC ACID. [Concomitant]
     Active Substance: FOLIC ACID
     Indication: PROPHYLAXIS OF NEURAL TUBE DEFECT
     Dosage: 5 [MG/D ]
     Route: 048
     Dates: start: 20180307, end: 20180423
  3. L-THYROXIN [Concomitant]
     Active Substance: LEVOTHYROXINE SODIUM
     Indication: HYPOTHYROIDISM
     Dosage: 100 [?G/D ]
     Route: 048
     Dates: start: 20180307, end: 20180805

REACTIONS (3)
  - Placental disorder [Recovered/Resolved]
  - Congenital uterine anomaly [Unknown]
  - Foetal growth restriction [Recovered/Resolved]
